FAERS Safety Report 5123982-1 (Version None)
Quarter: 2006Q3

REPORT INFORMATION
  Report Type: 
  Country: None (occurrence: None)
  Receive Date: 20060807
  Receipt Date: 20051114
  Transmission Date: 20061208
  Serious: Yes (Hospitalization)
  Sender: FDA-Public Use
  Company Number: 143725USA

PATIENT

DRUGS (4)
  1. LISINOPRIL [Suspect]
     Dosage: 5 MILLIGRAM ORAL
     Route: 048
     Dates: start: 20020908, end: 20030106
  2. LISINOPRIL [Suspect]
     Dosage: 10 MILLIGRAM ORAL
     Route: 048
     Dates: start: 20030107, end: 20040401
  3. LISINOPRIL [Suspect]
     Dosage: 20 MILLIGRAM ORAL
     Route: 048
     Dates: start: 20040402, end: 20040509
  4. LISINOPRIL [Suspect]
     Dosage: 40 MILLIGRAM ORAL
     Route: 048
     Dates: start: 20040510, end: 20040709

REACTIONS (2)
  - DIABETES MELLITUS [None]
  - PANCREATITIS NECROTISING [None]
